FAERS Safety Report 7429841-3 (Version None)
Quarter: 2011Q2

REPORT INFORMATION
  Report Type: 
  Country: None (occurrence: None)
  Receive Date: 20110418
  Receipt Date: 20110418
  Transmission Date: 20111010
  Serious: Yes (Other)
  Sender: FDA-Public Use
  Company Number: None

PATIENT
  Age: 69 Year
  Weight: 81.6475 kg

DRUGS (1)
  1. FLUTICASONE PROPIONATE [Suspect]
     Indication: RHINITIS ALLERGIC
     Dosage: 1 SPRAY DAILY NASAL (1 DOSE)
     Route: 045
     Dates: start: 20110408, end: 20110408

REACTIONS (2)
  - ANOSMIA [None]
  - AGEUSIA [None]
